FAERS Safety Report 7997855-0 (Version None)
Quarter: 2011Q4

REPORT INFORMATION
  Report Type: 
  Country: None (occurrence: None)
  Receive Date: 20111221
  Receipt Date: 20111014
  Transmission Date: 20120403
  Serious: No
  Sender: FDA-Public Use
  Company Number: US-PFIZER INC-K201101237

PATIENT
  Age: 64 Year
  Sex: Female

DRUGS (1)
  1. EPIPEN JR. [Suspect]
     Dosage: 0.15 MG, SINGLE
     Dates: start: 20111014, end: 20111014

REACTIONS (1)
  - ACCIDENTAL EXPOSURE [None]
